FAERS Safety Report 18668585 (Version 1)
Quarter: 2020Q4

REPORT INFORMATION
  Report Type: Spontaneous
  Country: US (occurrence: US)
  Receive Date: 20201225
  Receipt Date: 20201225
  Transmission Date: 20210114
  Serious: Yes (Hospitalization)
  Sender: FDA-Public Use
  Company Number: None

PATIENT
  Age: 5 Year
  Sex: Male
  Weight: 18.7 kg

DRUGS (10)
  1. CYCLOPHOSPHAMIDE. [Suspect]
     Active Substance: CYCLOPHOSPHAMIDE
     Dates: end: 20201104
  2. THIOGUANINE (6-TG) [Suspect]
     Active Substance: THIOGUANINE ANHYDROUS
     Dates: end: 20201117
  3. DOXORUBICIN HYDROCHLORIDE. [Suspect]
     Active Substance: DOXORUBICIN HYDROCHLORIDE
     Dates: end: 20201020
  4. ZINECARD [Suspect]
     Active Substance: DEXRAZOXANE HYDROCHLORIDE
     Dates: end: 20201020
  5. VINCRISTINE SULFATE. [Suspect]
     Active Substance: VINCRISTINE SULFATE
     Dates: end: 20201124
  6. CYTARABINE. [Suspect]
     Active Substance: CYTARABINE
     Dates: end: 20201111
  7. METHOTREXATE. [Suspect]
     Active Substance: METHOTREXATE
     Dates: end: 20201111
  8. GLEEVEC [Suspect]
     Active Substance: IMATINIB MESYLATE
     Dates: end: 20201130
  9. DEXAMETHASONE. [Suspect]
     Active Substance: DEXAMETHASONE
     Dates: end: 20201027
  10. ONCASPAR [Suspect]
     Active Substance: PEGASPARGASE
     Dates: end: 20201118

REACTIONS (6)
  - Pleural effusion [None]
  - Neutropenia [None]
  - Pyrexia [None]
  - Pericardial effusion [None]
  - Pneumonia fungal [None]
  - Hypotension [None]

NARRATIVE: CASE EVENT DATE: 20201201
